FAERS Safety Report 8389567-9 (Version None)
Quarter: 2012Q2

REPORT INFORMATION
  Report Type: 
  Country: None (occurrence: None)
  Receive Date: 20120528
  Receipt Date: 20120514
  Transmission Date: 20120825
  Serious: No
  Sender: FDA-Public Use
  Company Number: US-BAYER-2012-049191

PATIENT
  Age: 80 Year
  Sex: Female
  Weight: 63 kg

DRUGS (3)
  1. THYROID [Concomitant]
  2. VITAMINS NOS [Concomitant]
  3. NAPROXEN SODIUM [Suspect]
     Dosage: PRN
     Dates: start: 20120513, end: 20120514

REACTIONS (2)
  - ABDOMINAL DISCOMFORT [None]
  - DIARRHOEA [None]
